FAERS Safety Report 8507491-5 (Version None)
Quarter: 2012Q3

REPORT INFORMATION
  Report Type: 
  Country: None (occurrence: None)
  Receive Date: 20120713
  Receipt Date: 20120705
  Transmission Date: 20120928
  Serious: Yes (Other)
  Sender: FDA-Public Use
  Company Number: CO-AMGEN-COLSP2012042463

PATIENT
  Age: 67 Year
  Sex: Female

DRUGS (9)
  1. OMEPRAZOLE [Concomitant]
     Indication: GASTRITIS
     Dosage: UNK
     Route: 048
  2. PREDNISOLONE [Concomitant]
     Indication: RHEUMATOID ARTHRITIS
     Dosage: 5 MG, 1X/DAY
     Route: 048
     Dates: start: 19890101
  3. LOSARTAN POTASSIUM [Concomitant]
     Indication: BLOOD PRESSURE
     Dosage: 50 MG, 1X/DAY
     Route: 048
     Dates: start: 20120401
  4. ACETAMINOPHEN [Concomitant]
     Dosage: UNK
     Route: 065
  5. TERIPARATIDE [Concomitant]
     Dosage: UNK
     Route: 065
  6. ENBREL [Suspect]
     Indication: RHEUMATOID ARTHRITIS
     Dosage: 50 MG, WEEKLY
     Route: 058
     Dates: start: 20120101
  7. FUROSEMID                          /00032601/ [Concomitant]
     Dosage: UNK
     Route: 065
  8. OMEPRAZOLE [Concomitant]
     Indication: ULCER
  9. ASPIRIN [Concomitant]
     Dosage: UNK
     Route: 065

REACTIONS (8)
  - MALAISE [None]
  - MUSCULOSKELETAL PAIN [None]
  - HYPOKINESIA [None]
  - NECK PAIN [None]
  - BLOOD PRESSURE INCREASED [None]
  - ARTHRALGIA [None]
  - JOINT SWELLING [None]
  - PAIN IN EXTREMITY [None]
